FAERS Safety Report 5467425-7 (Version None)
Quarter: 2007Q3

REPORT INFORMATION
  Report Type: 
  Country: None (occurrence: None)
  Receive Date: 20070920
  Receipt Date: 20070906
  Transmission Date: 20080115
  Serious: Yes (Other)
  Sender: FDA-Public Use
  Company Number: 2007JP001947

PATIENT
  Age: 84 Year
  Sex: Female
  Weight: 50 kg

DRUGS (8)
  1. TACROLIMUS [Suspect]
     Indication: MYASTHENIA GRAVIS
     Dosage: 3 MG/G, ORAL
     Route: 048
     Dates: start: 20050520
  2. MESTINON [Concomitant]
  3. CARDENALINE (DOXAZOSIN MESILATE) [Concomitant]
  4. CONIEL (BENIDIPINE HYDROCHLORIDE) [Concomitant]
  5. CANDESARTAN CILEXETIL [Concomitant]
  6. GLYBURIDE [Concomitant]
  7. BASEN (VOGLIBOSE) [Concomitant]
  8. PRAVASTATIN [Concomitant]

REACTIONS (6)
  - ANGINA PECTORIS [None]
  - BLOOD CREATININE INCREASED [None]
  - FIBRIN D DIMER INCREASED [None]
  - HYPERGLYCAEMIA [None]
  - MYOCARDIAL INFARCTION [None]
  - WHITE BLOOD CELL COUNT INCREASED [None]
